FAERS Safety Report 5364836-5 (Version None)
Quarter: 2007Q2

REPORT INFORMATION
  Report Type: 
  Country: None (occurrence: None)
  Receive Date: 20070530
  Receipt Date: 20070304
  Transmission Date: 20071010
  Serious: No
  Sender: FDA-Public Use
  Company Number: 2006PV011706

PATIENT
  Age: 76 Year
  Sex: Female
  Weight: 73.9363 kg

DRUGS (10)
  1. BYETTA [Suspect]
     Indication: DIABETES MELLITUS NON-INSULIN-DEPENDENT
     Dosage: SEE IMAGE
     Route: 058
     Dates: start: 20060201, end: 20060101
  2. BYETTA [Suspect]
     Indication: DIABETES MELLITUS NON-INSULIN-DEPENDENT
     Dosage: SEE IMAGE
     Route: 058
     Dates: start: 20060301, end: 20060501
  3. BYETTA [Suspect]
     Indication: DIABETES MELLITUS NON-INSULIN-DEPENDENT
     Dosage: SEE IMAGE
     Route: 058
     Dates: start: 20060501, end: 20060701
  4. BYETTA [Suspect]
     Indication: DIABETES MELLITUS NON-INSULIN-DEPENDENT
     Dosage: SEE IMAGE
     Route: 058
     Dates: start: 20060701
  5. BYETTA [Suspect]
  6. ACTOS [Concomitant]
  7. METFORMIN HCL [Concomitant]
  8. RESTASIS [Concomitant]
  9. SOOTHE [Concomitant]
  10. SYNTHROID [Concomitant]

REACTIONS (10)
  - ALOPECIA [None]
  - BLOOD GLUCOSE INCREASED [None]
  - DECREASED APPETITE [None]
  - DRUG INEFFECTIVE [None]
  - HUNGER [None]
  - MACULOPATHY [None]
  - PHOTOPSIA [None]
  - SKIN CHAPPED [None]
  - VITREOUS FLOATERS [None]
  - WEIGHT DECREASED [None]
